FAERS Safety Report 11766449 (Version 1)
Quarter: 2015Q4

REPORT INFORMATION
  Report Type: Spontaneous
  Country: US (occurrence: US)
  Receive Date: 20151123
  Receipt Date: 20151123
  Transmission Date: 20160304
  Serious: Yes (Other)
  Sender: FDA-Public Use
  Company Number: US-PFIZER INC-2015354252

PATIENT
  Age: 90 Year
  Sex: Female

DRUGS (1)
  1. LYRICA [Suspect]
     Active Substance: PREGABALIN
     Indication: BACK PAIN
     Dosage: 50 MG TWO CAPSULE AT BEDTIME
     Route: 048

REACTIONS (5)
  - Spinal fracture [Unknown]
  - Insomnia [Unknown]
  - Vomiting [Unknown]
  - Renal disorder [Unknown]
  - Pain [Unknown]
